FAERS Safety Report 24811182 (Version 1)
Quarter: 2025Q1

REPORT INFORMATION
  Report Type: Spontaneous
  Country: CN (occurrence: CN)
  Receive Date: 20250106
  Receipt Date: 20250106
  Transmission Date: 20250409
  Serious: Yes (Hospitalization)
  Sender: ELI LILLY AND COMPANY
  Company Number: CN-ELI_LILLY_AND_COMPANY-CN202501000624

PATIENT
  Age: 70 Year
  Sex: Female
  Weight: 53 kg

DRUGS (4)
  1. HUMALOG MIX75/25 [Suspect]
     Active Substance: INSULIN LISPRO
     Indication: Diabetes mellitus
     Dosage: 10 U, BID (8 - 10 UNITS)
     Route: 058
     Dates: start: 2009
  2. HUMALOG MIX75/25 [Suspect]
     Active Substance: INSULIN LISPRO
     Dosage: 14 U, BID (12 - 14 UNITS)
     Route: 058
     Dates: start: 2019
  3. METFORMIN [Concomitant]
     Active Substance: METFORMIN HYDROCHLORIDE
     Indication: Diabetes mellitus
  4. REPAGLINIDE [Concomitant]
     Active Substance: REPAGLINIDE
     Indication: Product used for unknown indication

REACTIONS (7)
  - Blood glucose abnormal [Unknown]
  - Neuropathy peripheral [Unknown]
  - Nasopharyngitis [Unknown]
  - Peripheral coldness [Unknown]
  - Musculoskeletal discomfort [Unknown]
  - Cataract [Unknown]
  - Injection site pain [Unknown]

NARRATIVE: CASE EVENT DATE: 20170101
